FAERS Safety Report 20855672 (Version 1)
Quarter: 2022Q2

REPORT INFORMATION
  Report Type: Spontaneous
  Country: FR (occurrence: FR)
  Receive Date: 20220520
  Receipt Date: 20220520
  Transmission Date: 20220721
  Serious: Yes (Other)
  Sender: FDA-Public Use
  Company Number: None

PATIENT
  Age: 70 Year
  Sex: Female

DRUGS (2)
  1. SULFAMETHOXAZOLE\TRIMETHOPRIM [Suspect]
     Active Substance: SULFAMETHOXAZOLE\TRIMETHOPRIM
     Indication: Knee arthroplasty
     Dosage: UNK
     Route: 048
     Dates: start: 20220426
  2. RIFAMPIN [Suspect]
     Active Substance: RIFAMPIN
     Indication: Knee arthroplasty
     Dosage: UNK
     Route: 048
     Dates: start: 20220426

REACTIONS (1)
  - Rash maculo-papular [Recovering/Resolving]

NARRATIVE: CASE EVENT DATE: 20220503
